FAERS Safety Report 5806200-8 (Version None)
Quarter: 2008Q3

REPORT INFORMATION
  Report Type: 
  Country: None (occurrence: None)
  Receive Date: 20080709
  Receipt Date: 20080709
  Transmission Date: 20090109
  Serious: Yes (Disabling)
  Sender: FDA-Public Use
  Company Number: None

PATIENT
  Sex: Male

DRUGS (3)
  1. LIDOCAINE [Suspect]
     Indication: ROTATOR CUFF SYNDROME
     Dosage: 2% 250ML 014
     Dates: start: 20051222
  2. XYLOCAINE [Suspect]
     Indication: SHOULDER OPERATION
     Dosage: 270 CC 4.16 CC/HR
     Dates: start: 20060619
  3. STRYKER PAIN PUMP WITH LIDOCAINE [Concomitant]

REACTIONS (1)
  - CHONDROLYSIS [None]
